FAERS Safety Report 24360734 (Version 4)
Quarter: 2024Q4

REPORT INFORMATION
  Report Type: Spontaneous
  Country: US (occurrence: US)
  Receive Date: 20240925
  Receipt Date: 20241007
  Transmission Date: 20250114
  Serious: Yes (Other)
  Sender: JOHNSON AND JOHNSON
  Company Number: US-JNJFOC-20240955320

PATIENT

DRUGS (1)
  1. REMICADE [Suspect]
     Active Substance: INFLIXIMAB
     Indication: Hidradenitis
     Route: 041

REACTIONS (5)
  - Hidradenitis [Unknown]
  - Joint lock [Unknown]
  - Drug specific antibody [Unknown]
  - Drug ineffective for unapproved indication [Unknown]
  - Off label use [Unknown]
